FAERS Safety Report 18791236 (Version 5)
Quarter: 2023Q2

REPORT INFORMATION
  Report Type: Report from Study
  Country: US (occurrence: US)
  Receive Date: 20210126
  Receipt Date: 20230606
  Transmission Date: 20230722
  Serious: Yes (Other)
  Sender: FDA-Public Use
  Company Number: US-TAKEDA-2021TUS000969

PATIENT
  Sex: Male

DRUGS (2)
  1. HUMAN IMMUNOGLOBULIN G [Suspect]
     Active Substance: HUMAN IMMUNOGLOBULIN G
     Indication: Primary immunodeficiency syndrome
     Dosage: UNK
     Route: 065
  2. REMICADE [Suspect]
     Active Substance: INFLIXIMAB
     Indication: Acne
     Dosage: UNK
     Route: 065

REACTIONS (16)
  - Cardiac arrest [Unknown]
  - Empyema [Unknown]
  - Skin disorder [Unknown]
  - Musculoskeletal chest pain [Unknown]
  - Swelling [Unknown]
  - Mental disorder [Unknown]
  - Depression [Unknown]
  - Skin infection [Unknown]
  - Infusion related reaction [Unknown]
  - Overdose [Unknown]
  - Acne [Recovering/Resolving]
  - Emotional disorder [Unknown]
  - Anxiety [Unknown]
  - Pain [Unknown]
  - Abdominal discomfort [Unknown]
  - Fatigue [Unknown]
